FAERS Safety Report 14158943 (Version 2)
Quarter: 2018Q1

REPORT INFORMATION
  Report Type: Spontaneous
  Country: US (occurrence: US)
  Receive Date: 20171103
  Receipt Date: 20180122
  Transmission Date: 20180508
  Serious: Yes (Hospitalization)
  Sender: FDA-Public Use
  Company Number: US-VERTEX PHARMACEUTICALS-2017-006041

PATIENT
  Age: 16 Year
  Sex: Male

DRUGS (31)
  1. AQUADEKS                           /07679501/ [Concomitant]
     Active Substance: MINERALS\VITAMINS
     Dosage: 3 DOSAGE FORM, QD
     Route: 048
  2. AZITHROMYCIN ANHYDROUS. [Concomitant]
     Active Substance: AZITHROMYCIN ANHYDROUS
     Dosage: 500 MG, M, W, F
     Route: 048
  3. PULMOZYME [Concomitant]
     Active Substance: DORNASE ALFA
     Dosage: 1 MG/ML, QD
     Route: 055
  4. EPINEPHRINE. [Concomitant]
     Active Substance: EPINEPHRINE
     Dosage: 0.3 MG
  5. CAYSTON [Concomitant]
     Active Substance: AZTREONAM
     Dosage: 75 MG, TID FOR 28 DAYS
     Dates: start: 201608
  6. VITAMIN E                          /00110501/ [Concomitant]
     Active Substance: TOCOPHEROL
     Dosage: 400 INTERNATIONAL UNIT
     Route: 048
  7. ALBUTEROL                          /00139501/ [Concomitant]
     Active Substance: ALBUTEROL
     Dosage: 2 PUFFS, THREE TIMES A DAY
     Route: 055
  8. MOTRIN [Concomitant]
     Active Substance: IBUPROFEN
     Indication: PAIN
     Dosage: 200 MG
  9. ZINC SULFATE [Concomitant]
     Active Substance: ZINC SULFATE\ZINC SULFATE ANHYDROUS
     Dosage: 220 MG, QD
     Route: 048
  10. VITAMIN D3 [Concomitant]
     Active Substance: CHOLECALCIFEROL
     Dosage: 5000 INTERNATIONAL UNIT
     Route: 048
  11. INFLUENZA [Concomitant]
     Active Substance: INFLUENZA VIRUS VACCINE
  12. SODIUM CHLORIDE. [Concomitant]
     Active Substance: SODIUM CHLORIDE
     Dosage: 3 %
     Route: 055
  13. ZENPEP [Concomitant]
     Active Substance: PANCRELIPASE AMYLASE\PANCRELIPASE LIPASE\PANCRELIPASE PROTEASE
     Dosage: 25000 INTERNATIONAL UNIT
  14. VITAMIN K [Concomitant]
     Active Substance: PHYTONADIONE
     Dosage: 5 MG
     Route: 048
  15. TOBRAMYCIN. [Concomitant]
     Active Substance: TOBRAMYCIN
     Dosage: 300 MG
     Route: 055
     Dates: end: 2017
  16. OMEPRAZOLE. [Concomitant]
     Active Substance: OMEPRAZOLE
     Dosage: 20 MG
     Route: 048
  17. PROAIR HFA [Concomitant]
     Active Substance: ALBUTEROL SULFATE
     Dosage: UNK
     Route: 055
  18. CALCIUM CARBONATE. [Concomitant]
     Active Substance: CALCIUM CARBONATE
     Dosage: 500 MG, TID
     Route: 048
  19. GLYCOLAX [Concomitant]
     Active Substance: POLYETHYLENE GLYCOL 3350
     Indication: CONSTIPATION
     Dosage: 17 GRAM, TID
     Route: 048
  20. AQUAPHOR                           /00298701/ [Concomitant]
  21. ONDANSETRON [Concomitant]
     Active Substance: ONDANSETRON
     Dosage: 4 MG
  22. LANSOPRAZOLE. [Concomitant]
     Active Substance: LANSOPRAZOLE
     Dosage: 30 MG
     Route: 048
  23. VITAMIN A                          /00056001/ [Concomitant]
     Active Substance: RETINOL
     Dosage: 10000 INTERNATIONAL UNIT
     Route: 048
  24. BOOST [Concomitant]
     Active Substance: DIETARY SUPPLEMENT
     Dosage: 711 MILLILITER
  25. PHYTONADIONE. [Concomitant]
     Active Substance: PHYTONADIONE
     Dosage: 10 MG
     Route: 048
  26. URSODIOL. [Concomitant]
     Active Substance: URSODIOL
     Dosage: 300 MG
     Route: 048
  27. HYDROCORTISONE SODIUM SUCCINATE [Concomitant]
     Active Substance: HYDROCORTISONE SODIUM SUCCINATE
     Dosage: 100 MG
  28. DESONIDE. [Concomitant]
     Active Substance: DESONIDE
     Dosage: 0.05 %
  29. ORKAMBI [Suspect]
     Active Substance: IVACAFTOR\LUMACAFTOR
     Indication: CYSTIC FIBROSIS
     Dosage: 2 DOSAGE FORM, BID
     Route: 048
     Dates: start: 201608, end: 20170915
  30. MEPHYTON [Concomitant]
     Active Substance: PHYTONADIONE
     Dosage: 20 MG, QD
     Route: 048
  31. LACTOBACILLUS [Concomitant]
     Active Substance: LACTOBACILLUS ACIDOPHILUS
     Dosage: 1 CAP
     Route: 048

REACTIONS (11)
  - Prothrombin time ratio increased [Recovering/Resolving]
  - Ascites [Recovering/Resolving]
  - Pulmonary hypertension [Unknown]
  - Protein-losing gastroenteropathy [Recovering/Resolving]
  - Acute kidney injury [Recovered/Resolved]
  - Viral infection [Recovering/Resolving]
  - Cystic fibrosis hepatic disease [Recovering/Resolving]
  - Abdominal distension [Recovering/Resolving]
  - Diarrhoea [Recovered/Resolved]
  - Oedema peripheral [Recovered/Resolved]
  - Infective pulmonary exacerbation of cystic fibrosis [Recovering/Resolving]

NARRATIVE: CASE EVENT DATE: 2017
